FAERS Safety Report 17791542 (Version 1)
Quarter: 2020Q2

REPORT INFORMATION
  Report Type: Spontaneous
  Country: MA (occurrence: MT)
  Receive Date: 20200515
  Receipt Date: 20200515
  Transmission Date: 20200714
  Serious: Yes (Life-Threatening, Hospitalization, Other)
  Sender: FDA-Public Use
  Company Number: MA-ALVOGEN-2020-ALVOGEN-108367

PATIENT
  Age: 75 Year
  Sex: Male

DRUGS (2)
  1. BUPIVACAINE. [Suspect]
     Active Substance: BUPIVACAINE
     Indication: SPINAL ANAESTHESIA
     Dosage: 12.5 MG OF HYPERBARIC BUPIVACAINE (2.5 ML OF 0.5% SOLUTION)
     Route: 039
  2. FENTANYL. [Suspect]
     Active Substance: FENTANYL
     Indication: SPINAL ANAESTHESIA
     Dosage: 25 MICROGRAMS OF FENTANYL
     Route: 037

REACTIONS (1)
  - Paresis cranial nerve [Recovered/Resolved]
